FAERS Safety Report 8486330-5 (Version None)
Quarter: 2012Q3

REPORT INFORMATION
  Report Type: 
  Country: None (occurrence: None)
  Receive Date: 20120703
  Receipt Date: 20120627
  Transmission Date: 20120928
  Serious: Yes (Other)
  Sender: FDA-Public Use
  Company Number: US-GLAXOSMITHKLINE-A0973400A

PATIENT
  Age: 71 Year
  Sex: Male

DRUGS (10)
  1. SOMA [Concomitant]
  2. VICODIN [Concomitant]
  3. LISINOPRIL [Concomitant]
  4. SIMVASTATIN [Concomitant]
  5. HYDROCHLOROTHIAZIDE [Concomitant]
  6. ALBUTEROL [Concomitant]
  7. ADVAIR DISKUS 100/50 [Suspect]
     Indication: CHRONIC OBSTRUCTIVE PULMONARY DISEASE
     Dosage: 1PUFF TWICE PER DAY
     Route: 055
     Dates: start: 20090101
  8. DILTIAZEM HYDROCHOLORIDE [Concomitant]
  9. COMBIVENT [Concomitant]
  10. NITROSTAT [Concomitant]

REACTIONS (5)
  - PRODUCT QUALITY ISSUE [None]
  - CHRONIC OBSTRUCTIVE PULMONARY DISEASE [None]
  - DYSPNOEA [None]
  - ASTHMA [None]
  - DRUG INEFFECTIVE [None]
